FAERS Safety Report 5137652-7 (Version None)
Quarter: 2006Q4

REPORT INFORMATION
  Report Type: 
  Country: None (occurrence: None)
  Receive Date: 20061030
  Receipt Date: 20051209
  Transmission Date: 20070319
  Serious: No
  Sender: FDA-Public Use
  Company Number: US-GLAXOSMITHKLINE-A0585266A

PATIENT
  Age: 76 Year
  Sex: Female

DRUGS (5)
  1. ADVAIR HFA [Suspect]
     Indication: CHRONIC OBSTRUCTIVE PULMONARY DISEASE
     Dosage: 1PUFF TWICE PER DAY
     Route: 055
     Dates: start: 20051202
  2. NASACORT AQ [Suspect]
     Route: 045
     Dates: start: 20050901, end: 20050101
  3. FLOVENT [Concomitant]
  4. ATROVENT [Concomitant]
  5. ALBUTEROL [Concomitant]

REACTIONS (9)
  - ASTHENIA [None]
  - DYSPHONIA [None]
  - FATIGUE [None]
  - HEADACHE [None]
  - MALAISE [None]
  - NIGHTMARE [None]
  - PHARMACEUTICAL PRODUCT COMPLAINT [None]
  - SWELLING FACE [None]
  - WEIGHT INCREASED [None]
